FAERS Safety Report 25714850 (Version 1)
Quarter: 2025Q3

REPORT INFORMATION
  Report Type: Spontaneous
  Country: US (occurrence: US)
  Receive Date: 20250822
  Receipt Date: 20250822
  Transmission Date: 20251020
  Serious: No
  Sender: MERCK SHARP & DOHME LLC
  Company Number: US-009507513-2314514

PATIENT
  Sex: Female
  Weight: 88.4 kg

DRUGS (37)
  1. SOTATERCEPT [Suspect]
     Active Substance: SOTATERCEPT
     Indication: Product used for unknown indication
  2. SOTATERCEPT [Suspect]
     Active Substance: SOTATERCEPT
  3. SOTATERCEPT [Suspect]
     Active Substance: SOTATERCEPT
  4. SOTATERCEPT [Suspect]
     Active Substance: SOTATERCEPT
  5. REMODULIN [Suspect]
     Active Substance: TREPROSTINIL
     Indication: Pulmonary arterial hypertension
     Route: 058
     Dates: start: 20241004
  6. Daily multivitamin (Vitamins nos) Tablet [Concomitant]
  7. ZYRTEC [Concomitant]
     Active Substance: CETIRIZINE HYDROCHLORIDE
  8. CLOBETASOL PROPIONATE [Concomitant]
     Active Substance: CLOBETASOL PROPIONATE
  9. TYLENOL [Concomitant]
     Active Substance: ACETAMINOPHEN
  10. POTASSIUM CHLORIDE [Concomitant]
     Active Substance: POTASSIUM CHLORIDE
  11. SODIUM CHLORIDE [Concomitant]
     Active Substance: SODIUM CHLORIDE
  12. CALTRATE [Concomitant]
     Active Substance: CALCIUM CARBONATE
  13. Co q-10 (Ubidecarenone) [Concomitant]
  14. Ketamine HCL (Ketamine hydrochloride) [Concomitant]
  15. Lecithin (Glycine max extract) [Concomitant]
  16. VELETRI (EPOPROSTENOL SODIUM) [Concomitant]
     Active Substance: EPOPROSTENOL SODIUM
  17. SILDENAFIL CITRATE [Concomitant]
     Active Substance: SILDENAFIL CITRATE
  18. ELIQUIS [Concomitant]
     Active Substance: APIXABAN
  19. Ester-c (Ascorbic acid [Concomitant]
  20. METOPROLOL SUCCINATE [Concomitant]
     Active Substance: METOPROLOL SUCCINATE
  21. Clonidine (Clonidine hydrochloride) [Concomitant]
  22. KETOPROFEN [Concomitant]
     Active Substance: KETOPROFEN
  23. Centrum (Ascorbic acid, Biotin, Calcium pantothenate, Cyanocobalami... [Concomitant]
  24. Aspirin EC (Acetylsalicylic acid) [Concomitant]
  25. OXYGEN [Concomitant]
     Active Substance: OXYGEN
  26. SPIRONOLACTONE [Concomitant]
     Active Substance: SPIRONOLACTONE
  27. Lidocaine HCL (Lidocaine hydrochloride) [Concomitant]
  28. Amitriptyline HCL (Amitriptyline hydrochloride) [Concomitant]
  29. GABAPENTIN [Concomitant]
     Active Substance: GABAPENTIN
  30. Poloxamer (Poloxamer) Gel [Concomitant]
  31. Normal saline (Normal saline) [Concomitant]
  32. AMBRISENTAN [Concomitant]
     Active Substance: AMBRISENTAN
  33. Torsemide (Torasemide) [Concomitant]
  34. METOPROLOL TARTRATE [Concomitant]
     Active Substance: METOPROLOL TARTRATE
  35. Pain relief (Paracetamol) [Concomitant]
  36. ONDANSETRON HYDROCHLORIDE [Concomitant]
     Active Substance: ONDANSETRON HYDROCHLORIDE
  37. TRAMADOL HYDROCHLORIDE [Concomitant]
     Active Substance: TRAMADOL HYDROCHLORIDE

REACTIONS (1)
  - Injection site rash [Unknown]
